FAERS Safety Report 15786774 (Version 3)
Quarter: 2020Q3

REPORT INFORMATION
  Report Type: Spontaneous
  Country: US (occurrence: US)
  Receive Date: 20190103
  Receipt Date: 20200702
  Transmission Date: 20201102
  Serious: No
  Sender: FDA-Public Use
  Company Number: US-PFIZER INC-2019002458

PATIENT
  Age: 43 Year
  Sex: Male

DRUGS (2)
  1. XELJANZ [Suspect]
     Active Substance: TOFACITINIB CITRATE
     Indication: COLITIS ULCERATIVE
     Dosage: 10 MG, 2X/DAY
     Route: 048
  2. XELJANZ [Suspect]
     Active Substance: TOFACITINIB CITRATE
     Dosage: 15 MG, DAILY (5 MG DOSING INCREASE TO 2 TABLETS IN THE MORNING AND 1 TABLET IN THE EVENING)
     Route: 048
     Dates: start: 20200629

REACTIONS (3)
  - Hordeolum [Unknown]
  - Off label use [Unknown]
  - Skin infection [Unknown]
